FAERS Safety Report 17093759 (Version 1)
Quarter: 2019Q4

REPORT INFORMATION
  Report Type: Spontaneous
  Country: CN (occurrence: CN)
  Receive Date: 20191129
  Receipt Date: 20191129
  Transmission Date: 20200122
  Serious: Yes (Other)
  Sender: FDA-Public Use
  Company Number: NVSC2019CN048610

PATIENT
  Age: 25 Year
  Sex: Male
  Weight: 70 kg

DRUGS (1)
  1. SANDIMMUN [Suspect]
     Active Substance: CYCLOSPORINE
     Indication: ALLOGENIC STEM CELL TRANSPLANTATION
     Dosage: 50 MG, BID
     Route: 041
     Dates: start: 20190927, end: 20191012

REACTIONS (1)
  - Hepatic function abnormal [Not Recovered/Not Resolved]

NARRATIVE: CASE EVENT DATE: 20191002
